FAERS Safety Report 7995990-4 (Version None)
Quarter: 2011Q4

REPORT INFORMATION
  Report Type: 
  Country: None (occurrence: None)
  Receive Date: 20111220
  Receipt Date: 20111206
  Transmission Date: 20120403
  Serious: Yes (Hospitalization)
  Sender: FDA-Public Use
  Company Number: PHHY2011AU099511

PATIENT
  Sex: Female
  Weight: 91.5 kg

DRUGS (9)
  1. SANDOSTATIN LAR [Suspect]
     Indication: ACROMEGALY
     Dosage: 10 MG,
     Dates: start: 20110801, end: 20111012
  2. MOCLOBEMIDE [Concomitant]
     Dosage: 450 MG, BID
     Route: 048
  3. ESOMEPRAZOLE [Concomitant]
     Dosage: 40 MG, UNK
     Route: 048
  4. HYDROCORTISONE [Concomitant]
     Dosage: 20 MG, UNK
     Route: 048
  5. ATORVASTATIN [Concomitant]
     Indication: BLOOD CHOLESTEROL INCREASED
     Dosage: 40 MG, UNK
     Route: 048
  6. SANDOSTATIN LAR [Suspect]
     Dosage: UNK UKN, UNK
  7. LEVOTHYROXINE SODIUM [Concomitant]
     Dosage: 100 UG, UNK
     Route: 048
  8. OXYBUTYNIN [Concomitant]
     Dosage: 5 MG, UNK
     Route: 048
  9. HYDROCORTISONE [Concomitant]
     Dosage: 10 MG, UNK
     Route: 048

REACTIONS (3)
  - LOWER RESPIRATORY TRACT INFECTION [None]
  - URINARY TRACT INFECTION [None]
  - KIDNEY INFECTION [None]
